FAERS Safety Report 20691867 (Version 3)
Quarter: 2022Q2

REPORT INFORMATION
  Report Type: Report from Study
  Country: IT (occurrence: IT)
  Receive Date: 20220408
  Receipt Date: 20220506
  Transmission Date: 20220721
  Serious: Yes (Other)
  Sender: FDA-Public Use
  Company Number: IT-UCBSA-2021024984

PATIENT
  Sex: Female

DRUGS (9)
  1. LACOSAMIDE [Suspect]
     Active Substance: LACOSAMIDE
     Indication: Seizure
     Dosage: 100MG 2 TABLET BREAKING OF 2ND TABLET INTO HALF
  2. LACOSAMIDE [Suspect]
     Active Substance: LACOSAMIDE
     Dosage: 200 MILLIGRAM, 2X/DAY (BID)
  3. KEPPRA [Suspect]
     Active Substance: LEVETIRACETAM
     Indication: Seizure
     Dosage: 500MG HALF TABLET, 2X/DAY (BID)
     Dates: start: 202111, end: 202204
  4. RIVOTRIL [Concomitant]
     Active Substance: CLONAZEPAM
     Indication: Cognitive disorder
  5. VALIUM [Concomitant]
     Active Substance: DIAZEPAM
     Indication: Product used for unknown indication
  6. CYMBALTA [Concomitant]
     Active Substance: DULOXETINE HYDROCHLORIDE
     Indication: Product used for unknown indication
  7. LIORESAL [Concomitant]
     Active Substance: BACLOFEN
     Indication: Product used for unknown indication
  8. CYCLOBENZAPRINE [Concomitant]
     Active Substance: CYCLOBENZAPRINE
     Indication: Product used for unknown indication
  9. FOSTER [Concomitant]
     Active Substance: BECLOMETHASONE\FORMOTEROL
     Indication: Asthma

REACTIONS (17)
  - Seizure [Recovering/Resolving]
  - Memory impairment [Unknown]
  - Brain neoplasm benign [Unknown]
  - Cognitive disorder [Unknown]
  - Disturbance in attention [Unknown]
  - Muscle spasms [Unknown]
  - Vision blurred [Unknown]
  - Pain [Unknown]
  - Fibromyalgia [Unknown]
  - Fall [Unknown]
  - Skin disorder [Unknown]
  - Paraesthesia [Unknown]
  - Headache [Unknown]
  - Off label use [Unknown]
  - Wrong technique in product usage process [Unknown]
  - Therapeutic product effect incomplete [Unknown]
  - Therapeutic response delayed [Unknown]

NARRATIVE: CASE EVENT DATE: 20211101
